FAERS Safety Report 6373344-4 (Version None)
Quarter: 2009Q3

REPORT INFORMATION
  Report Type: 
  Country: None (occurrence: None)
  Receive Date: 20090924
  Receipt Date: 20090326
  Transmission Date: 20100115
  Serious: No
  Sender: FDA-Public Use
  Company Number: US-ASTRAZENECA-2009UW07840

PATIENT
  Sex: Female

DRUGS (1)
  1. SEROQUEL [Suspect]
     Indication: BIPOLAR DISORDER
     Route: 048

REACTIONS (5)
  - BIPOLAR DISORDER [None]
  - DEPRESSION [None]
  - HYPOTHYROIDISM [None]
  - IMPAIRED GASTRIC EMPTYING [None]
  - POLYCYSTIC OVARIES [None]
